FAERS Safety Report 25578332 (Version 1)
Quarter: 2025Q3

REPORT INFORMATION
  Report Type: Spontaneous
  Country: US (occurrence: US)
  Receive Date: 20250718
  Receipt Date: 20250718
  Transmission Date: 20251021
  Serious: No
  Sender: PFIZER
  Company Number: US-PFIZER INC-2020300967

PATIENT
  Age: 44 Year
  Sex: Female

DRUGS (1)
  1. XELJANZ [Suspect]
     Active Substance: TOFACITINIB CITRATE
     Indication: Colitis ulcerative
     Dosage: 15 MG, 1X/DAY (SHE TAKES 10 MG TABLET AND A 5 MG TABLET ONCE A DAY)

REACTIONS (3)
  - Headache [Unknown]
  - Off label use [Unknown]
  - Product use issue [Unknown]
